FAERS Safety Report 13165383 (Version 1)
Quarter: 2017Q1

REPORT INFORMATION
  Report Type: Other
  Country: GB (occurrence: GB)
  Receive Date: 20170131
  Receipt Date: 20170131
  Transmission Date: 20170428
  Serious: Yes (Hospitalization)
  Sender: FDA-Public Use
  Company Number: GB-HETERO LABS LTD-1062550

PATIENT
  Age: 84 Year
  Sex: Female

DRUGS (3)
  1. CLINDAMYCIN. [Concomitant]
     Active Substance: CLINDAMYCIN
  2. TEICOPLANIN [Concomitant]
     Active Substance: TEICOPLANIN
  3. LINEZOLID. [Suspect]
     Active Substance: LINEZOLID
     Indication: CELLULITIS

REACTIONS (3)
  - Swelling face [Recovered/Resolved]
  - Rash macular [Recovered/Resolved]
  - Hypersensitivity [Recovered/Resolved]
